FAERS Safety Report 8152674-X (Version None)
Quarter: 2012Q1

REPORT INFORMATION
  Report Type: 
  Country: None (occurrence: None)
  Receive Date: 20120215
  Receipt Date: 20120206
  Transmission Date: 20120608
  Serious: Yes (Congenital Anomaly, Other)
  Sender: FDA-Public Use
  Company Number: WAES 1201USA02584B1

PATIENT
  Sex: Female
  Weight: 3.261 kg

DRUGS (5)
  1. SUSTIVA [Suspect]
     Indication: PRODUCT USED FOR UNKNOWN INDICATION
     Dosage: TRANSPLACENTAL
     Route: 064
     Dates: start: 20111202, end: 20111212
  2. COMBIVIR [Suspect]
     Indication: PRODUCT USED FOR UNKNOWN INDICATION
     Dosage: TRANSPLACENTAL
     Route: 064
     Dates: start: 20111202, end: 20111212
  3. ISENTRESS [Suspect]
     Indication: PRODUCT USED FOR UNKNOWN INDICATION
     Dosage: TRANSPLACENTAL
     Route: 064
     Dates: start: 20111202, end: 20111212
  4. RETROVIR [Suspect]
     Indication: PRODUCT USED FOR UNKNOWN INDICATION
     Dosage: TRANSPLACENTAL
     Route: 064
     Dates: start: 20111212, end: 20111212
  5. RETROVIR [Suspect]
     Indication: PRODUCT USED FOR UNKNOWN INDICATION
     Dosage: TRANSPLACENTAL
     Route: 064
     Dates: start: 20111212, end: 20111212

REACTIONS (3)
  - MATERNAL DRUGS AFFECTING FOETUS [None]
  - CONGENITAL ANOMALY [None]
  - CLEFT LIP AND PALATE [None]
